FAERS Safety Report 9807783 (Version 5)
Quarter: 2014Q4

REPORT INFORMATION
  Report Type: Spontaneous
  Country: IT (occurrence: IT)
  Receive Date: 20140110
  Receipt Date: 20141031
  Transmission Date: 20150529
  Serious: Yes (Hospitalization)
  Sender: FDA-Public Use
  Company Number: IT-JNJFOC-20140101189

PATIENT
  Age: 42 Year
  Sex: Male

DRUGS (1)
  1. STELARA [Suspect]
     Active Substance: USTEKINUMAB
     Indication: PSORIASIS
     Route: 058
     Dates: start: 20100617, end: 20131114

REACTIONS (2)
  - Rectal abscess [Recovered/Resolved]
  - Anal fistula [Recovered/Resolved]

NARRATIVE: CASE EVENT DATE: 20131125
